FAERS Safety Report 7330361-5 (Version None)
Quarter: 2011Q1

REPORT INFORMATION
  Report Type: 
  Country: None (occurrence: None)
  Receive Date: 20110304
  Receipt Date: 20110224
  Transmission Date: 20110831
  Serious: Yes (Hospitalization)
  Sender: FDA-Public Use
  Company Number: US-BIOGENIDEC-2011BI007158

PATIENT
  Age: 51 Year
  Sex: Male
  Weight: 68 kg

DRUGS (8)
  1. PROVIGIL [Concomitant]
     Indication: FATIGUE
     Route: 048
     Dates: start: 20090512
  2. BACLOFEN [Concomitant]
     Indication: MUSCLE SPASTICITY
     Route: 048
     Dates: start: 20100202
  3. TYSABRI [Suspect]
     Indication: MULTIPLE SCLEROSIS
     Route: 042
     Dates: start: 20090826, end: 20100720
  4. LEXAPRO [Concomitant]
     Indication: DEPRESSION
     Route: 048
     Dates: start: 20080919
  5. VITAMIN D [Concomitant]
     Indication: VITAMIN D DEFICIENCY
     Route: 048
     Dates: start: 20101108
  6. LUNESTA [Concomitant]
     Indication: INSOMNIA
     Route: 048
     Dates: start: 20090116
  7. VESICARE [Concomitant]
     Indication: URINARY HESITATION
     Route: 048
     Dates: start: 20090512
  8. GILENYA [Concomitant]
     Indication: MULTIPLE SCLEROSIS
     Route: 048
     Dates: start: 20101108

REACTIONS (1)
  - INTERVERTEBRAL DISC PROTRUSION [None]
